FAERS Safety Report 7880296-4 (Version None)
Quarter: 2011Q4

REPORT INFORMATION
  Report Type: 
  Country: None (occurrence: None)
  Receive Date: 20111101
  Receipt Date: 20111028
  Transmission Date: 20120403
  Serious: No
  Sender: FDA-Public Use
  Company Number: US-PFIZER INC-2011265503

PATIENT

DRUGS (1)
  1. CELEBREX [Suspect]
     Indication: ARTHRALGIA
     Dosage: 200 MG, AS NEEDED

REACTIONS (1)
  - PAIN [None]
